FAERS Safety Report 8860910 (Version 1)
Quarter: 2012Q4

REPORT INFORMATION
  Report Type: 
  Country: US (occurrence: US)
  Receive Date: 20121025
  Receipt Date: 20121025
  Transmission Date: 20130627
  Serious: Yes (Life-Threatening, Disabling)
  Sender: FDA-Public Use
  Company Number: CHPA2012US022368

PATIENT
  Sex: Male

DRUGS (1)
  1. EXCEDRIN MIGRAINE [Suspect]
     Indication: MIGRAINE
     Dosage: Unk, Unk
     Route: 048

REACTIONS (3)
  - Headache [Unknown]
  - Rebound effect [Unknown]
  - Activities of daily living impaired [Unknown]
